FAERS Safety Report 5921465-X (Version None)
Quarter: 2008Q4

REPORT INFORMATION
  Report Type: 
  Country: None (occurrence: None)
  Receive Date: 20081016
  Receipt Date: 20081016
  Transmission Date: 20090506
  Serious: Yes (Other)
  Sender: FDA-Public Use
  Company Number: None

PATIENT
  Sex: Male
  Weight: 119.296 kg

DRUGS (6)
  1. AVODART [Suspect]
     Indication: PROSTATOMEGALY
     Dosage: 0.5MG ONE DAILY ORAL
     Route: 048
     Dates: start: 20080401, end: 20081001
  2. TRUSOPT [Concomitant]
  3. SOTALOL [Concomitant]
  4. COUMADIN [Concomitant]
  5. LISINOPRIL [Concomitant]
  6. PRAVASTATIN [Concomitant]

REACTIONS (2)
  - PRURITUS [None]
  - RASH [None]
